FAERS Safety Report 5956883-7 (Version None)
Quarter: 2008Q4

REPORT INFORMATION
  Report Type: 
  Country: None (occurrence: None)
  Receive Date: 20081118
  Receipt Date: 20081113
  Transmission Date: 20090506
  Serious: Yes (Other)
  Sender: FDA-Public Use
  Company Number: US-PFIZER INC-2007031934

PATIENT
  Sex: Male
  Weight: 154.2 kg

DRUGS (2)
  1. CHANTIX [Suspect]
     Indication: SMOKING CESSATION THERAPY
     Route: 048
     Dates: start: 20060101
  2. DEPAKOTE [Suspect]

REACTIONS (4)
  - HEADACHE [None]
  - PAROSMIA [None]
  - PNEUMONIA [None]
  - WEIGHT DECREASED [None]
